FAERS Safety Report 8885563 (Version 2)
Quarter: 2013Q1

REPORT INFORMATION
  Report Type: Spontaneous
  Country: US (occurrence: US)
  Receive Date: 20121101
  Receipt Date: 20130218
  Transmission Date: 20140127
  Serious: No
  Sender: FDA-Public Use
  Company Number: US-009507513-1210USA014624

PATIENT
  Sex: Male

DRUGS (4)
  1. VICTRELIS [Suspect]
     Indication: HEPATITIS C
     Dosage: 4 DF, TID
     Route: 048
     Dates: start: 20120523
  2. PEGINTRON [Suspect]
     Indication: HEPATITIS C
     Dosage: 0.5 ML, QW
     Route: 058
  3. RIBASPHERE [Suspect]
     Indication: HEPATITIS C
     Dosage: 2 DF, QAM
     Route: 048
  4. RIBASPHERE [Suspect]
     Dosage: 3 DF, QPM
     Route: 048

REACTIONS (3)
  - Oedema [Unknown]
  - Dyspnoea [Unknown]
  - Gastric disorder [Unknown]
